FAERS Safety Report 23835233 (Version 1)
Quarter: 2024Q2

REPORT INFORMATION
  Report Type: Report from Study
  Country: CA (occurrence: CA)
  Receive Date: 20240509
  Receipt Date: 20240509
  Transmission Date: 20240716
  Serious: Yes (Other)
  Sender: FDA-Public Use
  Company Number: CA-ABBVIE-5751310

PATIENT
  Sex: Female

DRUGS (2)
  1. BOTOX [Suspect]
     Active Substance: ONABOTULINUMTOXINA
     Indication: Migraine
     Dosage: TIME INTERVAL: AS NECESSARY: EVERY 3 MONTHS
     Route: 030
     Dates: start: 20211103, end: 20211103
  2. BOTOX [Suspect]
     Active Substance: ONABOTULINUMTOXINA
     Indication: Migraine
     Dosage: TIME INTERVAL: AS NECESSARY: EVERY 3 MONTHS
     Route: 030
     Dates: start: 202308, end: 202308

REACTIONS (2)
  - Surgery [Not Recovered/Not Resolved]
  - Migraine [Not Recovered/Not Resolved]
